FAERS Safety Report 6375906-7 (Version None)
Quarter: 2009Q3

REPORT INFORMATION
  Report Type: 
  Country: None (occurrence: None)
  Receive Date: 20090924
  Receipt Date: 20090916
  Transmission Date: 20100115
  Serious: Yes (Death)
  Sender: FDA-Public Use
  Company Number: DE-AMGEN-US365446

PATIENT
  Age: 70 Year
  Sex: Male
  Weight: 90 kg

DRUGS (4)
  1. ENBREL [Suspect]
     Indication: RHEUMATOID ARTHRITIS
     Route: 058
     Dates: start: 20070101, end: 20090701
  2. TILIDINE [Concomitant]
     Indication: NEURALGIA
     Dosage: TWO DOSAGE FORMS DAILY
     Route: 048
     Dates: start: 20070101, end: 20090801
  3. NALOXONE [Concomitant]
     Indication: NEURALGIA
     Dosage: TWO DOSAGE FORMS DAILY
     Route: 048
     Dates: start: 20070101, end: 20090801
  4. PREDNISOLONE [Concomitant]
     Indication: RHEUMATOID ARTHRITIS
     Route: 048
     Dates: start: 20070101, end: 20090801

REACTIONS (2)
  - ACUTE HEPATIC FAILURE [None]
  - METASTATIC BRONCHIAL CARCINOMA [None]
